FAERS Safety Report 23488367 (Version 2)
Quarter: 2024Q1

REPORT INFORMATION
  Report Type: Spontaneous
  Country: US (occurrence: US)
  Receive Date: 20240206
  Receipt Date: 20240319
  Transmission Date: 20240409
  Serious: Yes (Other)
  Sender: FDA-Public Use
  Company Number: US-Ascend Therapeutics US, LLC-2152736

PATIENT
  Sex: Male

DRUGS (3)
  1. ANDROGEL [Suspect]
     Active Substance: TESTOSTERONE
     Route: 065
     Dates: start: 2008
  2. ANDROGEL 1% [Suspect]
     Active Substance: TESTOSTERONE
     Route: 065
     Dates: start: 2008
  3. ANDROGEL 1% [Suspect]
     Active Substance: TESTOSTERONE
     Route: 065
     Dates: start: 2012, end: 2012

REACTIONS (1)
  - Thrombosis [Recovered/Resolved]

NARRATIVE: CASE EVENT DATE: 20080101
